FAERS Safety Report 20715271 (Version 10)
Quarter: 2025Q1

REPORT INFORMATION
  Report Type: Spontaneous
  Country: US (occurrence: US)
  Receive Date: 20220415
  Receipt Date: 20250128
  Transmission Date: 20250408
  Serious: No
  Sender: PFIZER
  Company Number: US-PFIZER INC-202101075070

PATIENT
  Age: 73 Year
  Sex: Female
  Weight: 71.2 kg

DRUGS (2)
  1. XELJANZ XR [Suspect]
     Active Substance: TOFACITINIB CITRATE
  2. XELJANZ XR [Suspect]
     Active Substance: TOFACITINIB CITRATE
     Dosage: 11 MG, DAILY

REACTIONS (9)
  - Extra dose administered [Unknown]
  - Arthralgia [Unknown]
  - Fatigue [Unknown]
  - Sedation [Unknown]
  - Neck pain [Unknown]
  - Back pain [Unknown]
  - Gait disturbance [Unknown]
  - Feeding disorder [Unknown]
  - Weight increased [Unknown]

NARRATIVE: CASE EVENT DATE: 20250113
